FAERS Safety Report 6416849-X (Version None)
Quarter: 2009Q4

REPORT INFORMATION
  Report Type: 
  Country: None (occurrence: None)
  Receive Date: 20091027
  Receipt Date: 20091013
  Transmission Date: 20100525
  Serious: Yes (Other)
  Sender: FDA-Public Use
  Company Number: GB-MYLANLABS-2009S1017906

PATIENT
  Age: 44 Year
  Sex: Female

DRUGS (6)
  1. CITALOPRAM HYDROBROMIDE [Suspect]
     Indication: DEPRESSED MOOD
     Dates: end: 20080620
  2. CLOZARIL [Suspect]
     Indication: SCHIZOPHRENIA
     Dates: start: 19910925
  3. DIPROBASE /01007601/ [Suspect]
     Indication: SKIN IRRITATION
  4. INTERFERON ALFA [Concomitant]
     Indication: DRUG USE FOR UNKNOWN INDICATION
     Dates: end: 20080501
  5. RIBAVIRIN [Concomitant]
     Indication: DRUG USE FOR UNKNOWN INDICATION
     Dates: end: 20080501
  6. VENLAFAXINE [Concomitant]
     Indication: DEPRESSED MOOD
     Route: 048
     Dates: start: 19990101, end: 20060817

REACTIONS (8)
  - COUGH [None]
  - DEPRESSED MOOD [None]
  - HAEMOGLOBIN DECREASED [None]
  - HEPATITIS C [None]
  - PLATELET COUNT DECREASED [None]
  - SKIN IRRITATION [None]
  - SPLENOMEGALY [None]
  - WHITE BLOOD CELL COUNT DECREASED [None]
